FAERS Safety Report 6689074-5 (Version None)
Quarter: 2010Q2

REPORT INFORMATION
  Report Type: 
  Country: None (occurrence: None)
  Receive Date: 20100420
  Receipt Date: 20100415
  Transmission Date: 20101027
  Serious: Yes (Death, Hospitalization)
  Sender: FDA-Public Use
  Company Number: FR-ROCHE-696723

PATIENT
  Sex: Male
  Weight: 64 kg

DRUGS (6)
  1. BEVACIZUMAB [Suspect]
     Dosage: LAST DOSE PRIOR TO SAE: 10 MARCH 2010
     Route: 042
     Dates: start: 20091125
  2. OXALIPLATIN [Suspect]
     Dosage: LAST DOSE PRIOR TO SAE: 10 MARCH 2010
     Route: 042
     Dates: start: 20091125
  3. FOLINIC ACID [Suspect]
     Dosage: LAST DOSE PRIOR TO SAE: 10 MARCH 2010, DRUG:CALCIUM FOLINATE
     Route: 042
     Dates: start: 20091125
  4. TAHOR [Concomitant]
     Dates: start: 20080101
  5. LODOZ [Concomitant]
     Dates: start: 20080101
  6. AMLOR [Concomitant]
     Dates: start: 20080101

REACTIONS (4)
  - ANAEMIA [None]
  - GENERALISED OEDEMA [None]
  - HYPOPROTEINAEMIA [None]
  - HYPOTHERMIA [None]
